FAERS Safety Report 10150298 (Version 1)
Quarter: 2014Q2

REPORT INFORMATION
  Report Type: Spontaneous
  Country: AR (occurrence: AR)
  Receive Date: 20140502
  Receipt Date: 20140502
  Transmission Date: 20141212
  Serious: Yes (Other)
  Sender: FDA-Public Use
  Company Number: AR-PFIZER INC-2014120530

PATIENT
  Age: 69 Year
  Sex: Female

DRUGS (1)
  1. SOMAVERT [Suspect]
     Indication: ACROMEGALY
     Dosage: 10 MG, 4X/WEEK
     Dates: start: 20140212

REACTIONS (3)
  - Tooth disorder [Recovered/Resolved]
  - Haemorrhoids [Unknown]
  - Laboratory test abnormal [Unknown]
